FAERS Safety Report 8399508-6 (Version None)
Quarter: 2012Q2

REPORT INFORMATION
  Report Type: 
  Country: None (occurrence: None)
  Receive Date: 20120323
  Receipt Date: 20110718
  Transmission Date: 20120825
  Serious: Yes (Other)
  Sender: FDA-Public Use
  Company Number: 163-21880-11072185

PATIENT
  Age: 56 Year
  Sex: Female

DRUGS (1)
  1. REVLIMID [Suspect]
     Indication: MULTIPLE MYELOMA
     Dosage: 15 MG, DAILY FOR 21 DAYS, OFF 7 DAYS, PO 7.5 MG, 1 IN 2 D, PO
     Route: 048
     Dates: start: 20110601, end: 20110701

REACTIONS (1)
  - FULL BLOOD COUNT DECREASED [None]
